FAERS Safety Report 8353969-7 (Version None)
Quarter: 2012Q2

REPORT INFORMATION
  Report Type: 
  Country: None (occurrence: None)
  Receive Date: 20120509
  Receipt Date: 20120427
  Transmission Date: 20120825
  Serious: Yes (Hospitalization, Other)
  Sender: FDA-Public Use
  Company Number: 2012SP022774

PATIENT
  Sex: Male

DRUGS (2)
  1. RIBAVIRIN [Suspect]
     Dates: start: 20120427
  2. RIBAVIRIN [Suspect]
     Dates: start: 20030404, end: 20030905

REACTIONS (6)
  - WEIGHT DECREASED [None]
  - FEELING ABNORMAL [None]
  - NO THERAPEUTIC RESPONSE [None]
  - IRRITABILITY [None]
  - JAUNDICE [None]
  - HEPATIC CIRRHOSIS [None]
